FAERS Safety Report 13298968 (Version 1)
Quarter: 2017Q1

REPORT INFORMATION
  Report Type: Report from Study
  Country: US (occurrence: US)
  Receive Date: 20170306
  Receipt Date: 20170306
  Transmission Date: 20170428
  Serious: Yes (Other)
  Sender: FDA-Public Use
  Company Number: US-PFIZER INC-2017092262

PATIENT
  Age: 34 Year
  Sex: Female

DRUGS (13)
  1. CYTARABINE. [Suspect]
     Active Substance: CYTARABINE
     Dosage: UNK
  2. DAUNORUBICIN [Suspect]
     Active Substance: DAUNORUBICIN
     Indication: ACUTE LYMPHOCYTIC LEUKAEMIA
     Dosage: UNK
  3. ETOPOSIDE. [Suspect]
     Active Substance: ETOPOSIDE
     Indication: ACUTE LYMPHOCYTIC LEUKAEMIA
     Dosage: UNK
  4. CYCLOPHOSPHAMIDE. [Suspect]
     Active Substance: CYCLOPHOSPHAMIDE
     Indication: ACUTE LYMPHOCYTIC LEUKAEMIA
     Dosage: UNK
  5. L-ASPARAGINASE [Suspect]
     Active Substance: ASPARAGINASE
     Indication: ACUTE LYMPHOCYTIC LEUKAEMIA
     Dosage: UNK
  6. IMATINIB [Suspect]
     Active Substance: IMATINIB
     Indication: ACUTE LYMPHOCYTIC LEUKAEMIA
     Dosage: UNK
  7. MERCAPTOPURINE. [Suspect]
     Active Substance: MERCAPTOPURINE
     Indication: ACUTE LYMPHOCYTIC LEUKAEMIA
     Dosage: UNK
  8. DOXORUBICIN HCL [Suspect]
     Active Substance: DOXORUBICIN HYDROCHLORIDE
     Dosage: UNK
  9. THIOGUANINE [Suspect]
     Active Substance: THIOGUANINE
     Indication: ACUTE LYMPHOCYTIC LEUKAEMIA
     Dosage: UNK
  10. VINCRISTINE SULFATE. [Suspect]
     Active Substance: VINCRISTINE SULFATE
     Indication: ACUTE LYMPHOCYTIC LEUKAEMIA
     Dosage: UNK
  11. DEXAMETHASONE. [Suspect]
     Active Substance: DEXAMETHASONE
     Indication: ACUTE LYMPHOCYTIC LEUKAEMIA
     Dosage: UNK
  12. PREDNISONE. [Suspect]
     Active Substance: PREDNISONE
     Indication: ACUTE LYMPHOCYTIC LEUKAEMIA
     Dosage: UNK
  13. METHOTREXATE. [Suspect]
     Active Substance: METHOTREXATE
     Indication: ACUTE LYMPHOCYTIC LEUKAEMIA
     Dosage: UNK

REACTIONS (1)
  - Foetal death [Unknown]
